FAERS Safety Report 8923428 (Version 2)
Quarter: 2013Q1

REPORT INFORMATION
  Report Type: Spontaneous
  Country: IT (occurrence: IT)
  Receive Date: 20121123
  Receipt Date: 20130107
  Transmission Date: 20140127
  Serious: Yes (Other)
  Sender: FDA-Public Use
  Company Number: PHHY2012IT106761

PATIENT
  Age: 56 Year
  Sex: Female

DRUGS (4)
  1. ACLASTA [Suspect]
     Indication: OSTEOPOROSIS
     Dosage: 5 MG, UNK
     Route: 042
     Dates: start: 20120925
  2. AROMASIN [Concomitant]
     Dosage: 25 MG, UNK
     Route: 048
  3. DIBASE [Concomitant]
     Dosage: 25000 IU, UNK
     Route: 048
  4. GLUCOSAMINE + CHONDROITIN SULFATE [Concomitant]
     Dosage: 1 DF, DAILY
     Route: 048

REACTIONS (6)
  - Mastitis [Recovered/Resolved]
  - Pyrexia [Recovered/Resolved]
  - Nausea [Recovered/Resolved]
  - Vomiting [Recovered/Resolved]
  - Alopecia [Recovered/Resolved]
  - Decreased immune responsiveness [Unknown]
